FAERS Safety Report 9683625 (Version 1)
Quarter: 2013Q4

REPORT INFORMATION
  Report Type: Report from Study
  Country: KR (occurrence: KR)
  Receive Date: 20131112
  Receipt Date: 20131112
  Transmission Date: 20140711
  Serious: Yes (Hospitalization)
  Sender: FDA-Public Use
  Company Number: KR-BAYER-2013-134716

PATIENT
  Age: 59 Year
  Sex: Male
  Weight: 69 kg

DRUGS (7)
  1. NEXAVAR [Suspect]
     Indication: HEPATOCELLULAR CARCINOMA
     Dosage: DAILY DOSE 800 MG
     Route: 048
     Dates: start: 20100318, end: 20100331
  2. BARACLUDE [Concomitant]
     Indication: LIVER DISORDER
     Dosage: DAILY DOSE .5 MG
     Route: 048
  3. LEGALON [Concomitant]
     Indication: LIVER DISORDER
     Dosage: 140 MG, TID
     Route: 048
  4. PENNEL [Concomitant]
     Indication: LIVER DISORDER
     Dosage: ^1 CAPSULE X TID^
     Route: 048
  5. MEGESTROL ACETATE [Concomitant]
     Indication: DECREASED APPETITE
     Dosage: 10 ML, BID
     Route: 048
     Dates: start: 20100318, end: 20100401
  6. MOTILIUM-M [Concomitant]
     Indication: DYSPEPSIA
     Dosage: 25.44 MG, TID
     Dates: start: 20100318, end: 20100401
  7. BEARSE [Concomitant]
     Indication: DYSPEPSIA
     Dosage: ^1 TAB X TID^
     Dates: start: 20100318, end: 20100401

REACTIONS (1)
  - Abdominal distension [Recovered/Resolved]
